FAERS Safety Report 8414057-4 (Version None)
Quarter: 2012Q2

REPORT INFORMATION
  Report Type: 
  Country: None (occurrence: None)
  Receive Date: 20120323
  Receipt Date: 20110404
  Transmission Date: 20120825
  Serious: Yes (Disabling)
  Sender: FDA-Public Use
  Company Number: 163-21880-11022088

PATIENT
  Sex: Male

DRUGS (1)
  1. REVLIMID [Suspect]
     Indication: HEAD AND NECK CANCER
     Dosage: 25 MG, 1 IN 1 D, PO
     Route: 048
     Dates: start: 20101214, end: 20110208

REACTIONS (2)
  - HEAD AND NECK CANCER [None]
  - DISEASE PROGRESSION [None]
